FAERS Safety Report 25276051 (Version 1)
Quarter: 2025Q2

REPORT INFORMATION
  Report Type: Report from Study
  Country: US (occurrence: US)
  Receive Date: 20250507
  Receipt Date: 20250507
  Transmission Date: 20250717
  Serious: Yes (Hospitalization, Other)
  Sender: GILEAD
  Company Number: US-GILEAD-2025-0712142

PATIENT
  Sex: Female

DRUGS (29)
  1. AZTREONAM LYSINE [Suspect]
     Active Substance: AZTREONAM LYSINE
     Indication: Bacterial disease carrier
     Dosage: 75 MG, BID (INHALE 1 VIAL (75 MG) EVERY 12 HOURS, 28 DAYS ON AND 28 DAYS OFF)
     Route: 055
  2. FINTEPLA [Concomitant]
     Active Substance: FENFLURAMINE
  3. ENALAPRIL MALEATE [Concomitant]
     Active Substance: ENALAPRIL MALEATE
  4. OXYGEN [Concomitant]
     Active Substance: OXYGEN
  5. CREON [Concomitant]
     Active Substance: PANCRELIPASE AMYLASE\PANCRELIPASE LIPASE\PANCRELIPASE PROTEASE
  6. LEVALBUTEROL HYDROCHLORIDE [Concomitant]
     Active Substance: LEVALBUTEROL HYDROCHLORIDE
  7. FLONASE ALLERGY RELIEF [Concomitant]
     Active Substance: FLUTICASONE PROPIONATE
  8. METOPROLOL TARTRATE [Concomitant]
     Active Substance: METOPROLOL TARTRATE
  9. AMOXICILLIN [Concomitant]
     Active Substance: AMOXICILLIN
  10. PULMICORT TURBUHALER [Concomitant]
     Active Substance: BUDESONIDE
  11. ZOSYN [Concomitant]
     Active Substance: PIPERACILLIN SODIUM\TAZOBACTAM SODIUM
  12. VITAMIN D3 [Concomitant]
     Active Substance: CHOLECALCIFEROL
  13. PHENOBARBITAL [Concomitant]
     Active Substance: PHENOBARBITAL
  14. LACOSAMIDE [Concomitant]
     Active Substance: LACOSAMIDE
  15. FENOFIBRATE [Concomitant]
     Active Substance: FENOFIBRATE
  16. SODIUM BICARBONATE [Concomitant]
     Active Substance: SODIUM BICARBONATE
  17. OMEPRAZOLE [Concomitant]
     Active Substance: OMEPRAZOLE
  18. FERROUS SULFATE [Concomitant]
     Active Substance: FERROUS SULFATE
  19. PULMOZYME [Concomitant]
     Active Substance: DORNASE ALFA
  20. HYDROCORTISONE ACETATE [Concomitant]
     Active Substance: HYDROCORTISONE ACETATE
  21. CHILDREN^S ALLERGY FEXOFENADINE HYDROCHLORIDE [Concomitant]
  22. FYCOMPA [Concomitant]
     Active Substance: PERAMPANEL
  23. NYSTATIN [Concomitant]
     Active Substance: NYSTATIN
  24. TACROLIMUS [Concomitant]
     Active Substance: TACROLIMUS
  25. DIAZEPAM [Concomitant]
     Active Substance: DIAZEPAM
  26. LOPERAMIDE [Concomitant]
     Active Substance: LOPERAMIDE
  27. TOPIRAMATE [Concomitant]
     Active Substance: TOPIRAMATE
  28. VALTOCO [Concomitant]
     Active Substance: DIAZEPAM
  29. MAGONATE [MAGNESIUM CARBONATE] [Concomitant]

REACTIONS (4)
  - Hypovolaemic shock [Unknown]
  - Neoplasm malignant [Unknown]
  - Product use in unapproved indication [Not Recovered/Not Resolved]
  - Product use issue [Not Recovered/Not Resolved]
